FAERS Safety Report 5805787-9 (Version None)
Quarter: 2008Q3

REPORT INFORMATION
  Report Type: 
  Country: None (occurrence: None)
  Receive Date: 20080710
  Receipt Date: 20080703
  Transmission Date: 20090109
  Serious: Yes (Congenital Anomaly)
  Sender: FDA-Public Use
  Company Number: GB-TEVA-173911ISR

PATIENT

DRUGS (1)
  1. METFORMIN [Suspect]
     Route: 064

REACTIONS (1)
  - SPINA BIFIDA [None]
